FAERS Safety Report 4440631-6 (Version None)
Quarter: 2004Q3

REPORT INFORMATION
  Report Type: 
  Country: None (occurrence: None)
  Receive Date: 20040901
  Receipt Date: 20040901
  Transmission Date: 20050211
  Serious: Yes (Hospitalization)
  Sender: FDA-Public Use
  Company Number: None

PATIENT
  Sex: Female
  Weight: 72.5755 kg

DRUGS (3)
  1. ROBITUSSIN [Suspect]
     Indication: SINUS DISORDER
     Dosage: 600[PRIOR TO ADMISSION]
  2. SUDAFED S.A. [Suspect]
     Indication: SINUS DISORDER
     Dosage: 120 MG TABLET [PRIOR TO ADMISSION]
  3. ZITHROMAX [Concomitant]

REACTIONS (3)
  - HEART RATE INCREASED [None]
  - NAUSEA [None]
  - VOMITING [None]
